FAERS Safety Report 8068026-7 (Version None)
Quarter: 2012Q1

REPORT INFORMATION
  Report Type: 
  Country: None (occurrence: None)
  Receive Date: 20120124
  Receipt Date: 20110923
  Transmission Date: 20120608
  Serious: No
  Sender: FDA-Public Use
  Company Number: US-AMGEN-USASP2011049481

PATIENT
  Sex: Female

DRUGS (2)
  1. VALTREX [Concomitant]
     Indication: HERPES ZOSTER
  2. PROLIA [Suspect]
     Indication: OSTEOPOROSIS POSTMENOPAUSAL
     Dosage: UNK UNK, Q6MO
     Dates: start: 20101201, end: 20110101

REACTIONS (2)
  - SKIN LESION [None]
  - HERPES ZOSTER [None]
